FAERS Safety Report 14959503 (Version 1)
Quarter: 2018Q2

REPORT INFORMATION
  Report Type: Spontaneous
  Country: US (occurrence: US)
  Receive Date: 20180531
  Receipt Date: 20180531
  Transmission Date: 20180711
  Serious: No
  Sender: FDA-Public Use
  Company Number: US-TARO-2018TAR00302

PATIENT
  Sex: Female

DRUGS (1)
  1. FLUOCINOLONE ACETONIDE TOPICAL SCALP OIL 0.01% [Suspect]
     Active Substance: FLUOCINOLONE ACETONIDE
     Dosage: UNK UNK, EVERY 72 HOURS
     Route: 061
     Dates: start: 201804, end: 201804

REACTIONS (5)
  - Dysgeusia [Unknown]
  - Feeling abnormal [Unknown]
  - Incorrect dose administered [Recovered/Resolved]
  - Headache [Unknown]
  - Product quality issue [Not Recovered/Not Resolved]

NARRATIVE: CASE EVENT DATE: 201804
